FAERS Safety Report 5808542-9 (Version None)
Quarter: 2008Q3

REPORT INFORMATION
  Report Type: 
  Country: None (occurrence: None)
  Receive Date: 20080709
  Receipt Date: 20080709
  Transmission Date: 20090109
  Serious: Yes (Hospitalization)
  Sender: FDA-Public Use
  Company Number: None

PATIENT
  Age: 70 Year
  Sex: Male

DRUGS (2)
  1. CLOPIDOGREL [Suspect]
     Indication: CORONARY ARTERIAL STENT INSERTION
     Dosage: 75 MG EVERY DAY PO
     Route: 048
     Dates: start: 20070101
  2. CLOPIDOGREL [Suspect]
     Indication: CORONARY ARTERY DISEASE
     Dosage: 75 MG EVERY DAY PO
     Route: 048
     Dates: start: 20070101

REACTIONS (4)
  - HAEMOGLOBIN DECREASED [None]
  - IMPLANTABLE DEFIBRILLATOR INSERTION [None]
  - POST PROCEDURAL HAEMATOMA [None]
  - POST PROCEDURAL HAEMORRHAGE [None]
